FAERS Safety Report 22278116 (Version 1)
Quarter: 2023Q2

REPORT INFORMATION
  Report Type: Spontaneous
  Country: TR (occurrence: TR)
  Receive Date: 20230503
  Receipt Date: 20230503
  Transmission Date: 20230722
  Serious: Yes (Other)
  Sender: FDA-Public Use
  Company Number: TR-MankindUS-000062

PATIENT
  Age: 40 Year
  Sex: Female

DRUGS (2)
  1. ACETAZOLAMIDE [Suspect]
     Active Substance: ACETAZOLAMIDE
     Indication: Idiopathic intracranial hypertension
     Dosage: REDUCED TO 500 MG/DAY
     Dates: start: 2020
  2. TOPIRAMATE [Suspect]
     Active Substance: TOPIRAMATE
     Indication: Idiopathic intracranial hypertension
     Dates: start: 2020

REACTIONS (2)
  - Metabolic acidosis [Recovered/Resolved]
  - Hypocapnia [Recovered/Resolved]
